FAERS Safety Report 6549770-7 (Version None)
Quarter: 2010Q1

REPORT INFORMATION
  Report Type: 
  Country: None (occurrence: None)
  Receive Date: 20100125
  Receipt Date: 20100119
  Transmission Date: 20100710
  Serious: Yes (Death)
  Sender: FDA-Public Use
  Company Number: JP-ASTRAZENECA-2009SE33572

PATIENT
  Age: 80 Year
  Sex: Female
  Weight: 41 kg

DRUGS (7)
  1. OMEPRAL [Suspect]
     Indication: ANASTOMOTIC ULCER
     Route: 048
     Dates: start: 20091221, end: 20091226
  2. MUCOSTA [Concomitant]
     Indication: GASTRIC CANCER
     Route: 048
     Dates: start: 20040701, end: 20091226
  3. LAC-B [Concomitant]
     Indication: DIARRHOEA
     Route: 048
     Dates: start: 20040701, end: 20091226
  4. BERIZYM [Concomitant]
     Indication: GASTRIC CANCER
     Route: 048
     Dates: start: 20040701, end: 20091226
  5. PURSENNID [Concomitant]
     Indication: CONSTIPATION
     Route: 048
     Dates: start: 20020118, end: 20091226
  6. MAGMITT [Concomitant]
     Indication: CONSTIPATION
     Route: 048
     Dates: start: 20020118, end: 20091226
  7. DAI-KENCHU-TO [Concomitant]
     Indication: INTESTINAL OBSTRUCTION
     Route: 048
     Dates: end: 20091226

REACTIONS (2)
  - DIARRHOEA [None]
  - VOMITING [None]
